FAERS Safety Report 4416670-8 (Version None)
Quarter: 2004Q3

REPORT INFORMATION
  Report Type: 
  Country: None (occurrence: None)
  Receive Date: 20040802
  Receipt Date: 20040721
  Transmission Date: 20050211
  Serious: Yes (Hospitalization)
  Sender: FDA-Public Use
  Company Number: US-SHR-04-019715

PATIENT
  Age: 18 Year
  Sex: Female
  Weight: 64.9 kg

DRUGS (4)
  1. YASMIN [Suspect]
     Indication: DYSMENORRHOEA
     Dosage: 1 TAB(S), 1X/DAY, ORAL
     Route: 048
     Dates: start: 20030217, end: 20040108
  2. ZOLOFT [Concomitant]
  3. GUAIFENEX (PHENYLEPHRINE HYDROCHLORIDE, GUAIFENESIN, PHENYLPROPANOLAMI [Concomitant]
  4. ALLERGY SHOT [Concomitant]

REACTIONS (2)
  - DEHYDRATION [None]
  - RENAL FAILURE [None]
